FAERS Safety Report 5506831-9 (Version None)
Quarter: 2007Q4

REPORT INFORMATION
  Report Type: 
  Country: None (occurrence: None)
  Receive Date: 20071105
  Receipt Date: 20071026
  Transmission Date: 20080405
  Serious: Yes (Other)
  Sender: FDA-Public Use
  Company Number: CA-SHR-CA-2007-032870

PATIENT
  Age: 56 Year
  Sex: Female
  Weight: 53 kg

DRUGS (2)
  1. BETASERON [Suspect]
     Indication: PRIMARY PROGRESSIVE MULTIPLE SCLEROSIS
     Dosage: 8 MIU, EVERY 2D
     Route: 058
     Dates: start: 20050728
  2. GABAPENTIN [Suspect]
     Indication: PAIN
     Dosage: 1200 MG, 1X/DAY
     Route: 048

REACTIONS (4)
  - FALL [None]
  - JOINT SPRAIN [None]
  - MUSCULAR WEAKNESS [None]
  - SWELLING [None]
